FAERS Safety Report 16590957 (Version 1)
Quarter: 2019Q3

REPORT INFORMATION
  Report Type: Spontaneous
  Country: DE (occurrence: DE)
  Receive Date: 20190718
  Receipt Date: 20190718
  Transmission Date: 20191004
  Serious: Yes (Other)
  Sender: FDA-Public Use
  Company Number: DE-AUROBINDO-AUR-APL-2019-039782

PATIENT

DRUGS (5)
  1. LEVODOPA [Suspect]
     Active Substance: LEVODOPA
     Indication: PARKINSON^S DISEASE
     Dosage: 450 MILLIGRAM, ONCE A DAY, GRADUALLY DOSED
     Route: 065
  2. LEVODOPA [Suspect]
     Active Substance: LEVODOPA
     Dosage: TRIAL INCREASE OF DOSAGE (L-DOPA TEST)
     Route: 065
  3. AMANTADINE HYDROCHLORIDE. [Suspect]
     Active Substance: AMANTADINE HYDROCHLORIDE
     Indication: PARKINSON^S DISEASE
     Dosage: 150 MILLIGRAM, TWO TIMES A DAY (EVERY 12 HOURS)
     Route: 065
  4. PRAMIPEXOLE. [Suspect]
     Active Substance: PRAMIPEXOLE
     Indication: PARKINSON^S DISEASE
     Dosage: 3.15 MILLIGRAM, ONCE A DAY
     Route: 065
  5. PRAMIPEXOLE. [Suspect]
     Active Substance: PRAMIPEXOLE
     Dosage: 0.7 MILLIGRAM, 3 TIMES A DAY
     Route: 065

REACTIONS (3)
  - Orthostatic intolerance [Unknown]
  - Camptocormia [Recovering/Resolving]
  - Pleurothotonus [Unknown]
